FAERS Safety Report 10344159 (Version 2)
Quarter: 2014Q3

REPORT INFORMATION
  Report Type: Spontaneous
  Country: JP (occurrence: JP)
  Receive Date: 20140728
  Receipt Date: 20140909
  Transmission Date: 20150326
  Serious: Yes (Hospitalization, Other)
  Sender: FDA-Public Use
  Company Number: JP-UCBSA-2014005987

PATIENT
  Age: 66 Year
  Sex: Female

DRUGS (3)
  1. CODEINE PHOSPHATE [Concomitant]
     Active Substance: CODEINE PHOSPHATE
     Indication: COUGH
     Dosage: 1 G
     Route: 048
     Dates: start: 20140522, end: 20140604
  2. PNEUMOVAX 23 [Suspect]
     Active Substance: PNEUMOCOCCAL VACCINE, POLYVALENT 23
     Indication: PROPHYLAXIS
     Dosage: UNKNOWN
     Route: 051
     Dates: start: 20140411
  3. XYZAL [Suspect]
     Active Substance: LEVOCETIRIZINE DIHYDROCHLORIDE
     Indication: PRURITUS
     Dosage: 5 MG, ONCE DAILY (QD)
     Route: 048
     Dates: start: 20140310, end: 20140618

REACTIONS (3)
  - Lung infiltration [Unknown]
  - Computerised tomogram thorax abnormal [Unknown]
  - Interstitial lung disease [Recovering/Resolving]

NARRATIVE: CASE EVENT DATE: 2014
